FAERS Safety Report 18649254 (Version 2)
Quarter: 2021Q3

REPORT INFORMATION
  Report Type: Spontaneous
  Country: SE (occurrence: SE)
  Receive Date: 20201222
  Receipt Date: 20210811
  Transmission Date: 20211014
  Serious: Yes (Death)
  Sender: FDA-Public Use
  Company Number: SE-MYLANLABS-2020M1103479

PATIENT
  Age: 65 Year
  Sex: Male

DRUGS (19)
  1. CAPECITABINE. [Suspect]
     Active Substance: CAPECITABINE
     Indication: ADJUVANT THERAPY
     Dosage: UNK
     Dates: start: 20200908, end: 20201011
  2. CAPECITABINE. [Suspect]
     Active Substance: CAPECITABINE
     Dosage: UNK (DAY 1?15  EVERY 3 WEEKS DOSAGE 1800 MG X 2)
     Dates: start: 20200908, end: 20201010
  3. INOLAXOL                           /00561902/ [Concomitant]
     Dosage: ORAL POWDER IN A SINGLE DOSE, 1 QD
     Dates: start: 20200924
  4. BUFOMIX EASYHALER [Concomitant]
     Active Substance: BUDESONIDE\FORMOTEROL FUMARATE
     Dosage: INHALE 2 TIMES, TWICE A DAY
     Dates: start: 20190206
  5. BETNOVAT                           /00008503/ [Concomitant]
     Dosage: 2, QD
     Dates: start: 20170929
  6. ALVEDON [Concomitant]
     Active Substance: ACETAMINOPHEN
     Dosage: TAKE 2 TABLETS IF NEEDED AT MOST
     Dates: start: 20200812
  7. MINDIAB [Concomitant]
     Active Substance: GLIPIZIDE
     Dosage: 10 MILLIGRAM, QD
     Dates: start: 20170908
  8. MINIDERM                           /00200601/ [Concomitant]
     Dosage: 2, QD
     Dates: start: 20170907
  9. JANUVIA [Concomitant]
     Active Substance: SITAGLIPTIN PHOSPHATE
     Dosage: 100 MILLIGRAM, QD
     Dates: start: 20170908
  10. HYDROCHLOROTHIAZIDE. [Concomitant]
     Active Substance: HYDROCHLOROTHIAZIDE
     Dosage: 25 MILLIGRAM, QD
     Dates: start: 20170908
  11. OMEPRAZOLE. [Concomitant]
     Active Substance: OMEPRAZOLE
     Dosage: 40 MILLIGRAM, QD
     Dates: start: 20170908
  12. TROMBYL [Concomitant]
     Active Substance: ASPIRIN
     Dosage: 75 MILLIGRAM, QD
     Dates: start: 20170908
  13. ATORVASTATIN [Concomitant]
     Active Substance: ATORVASTATIN
     Dosage: 20 MILLIGRAM, QD
     Dates: start: 20180721
  14. LORATADINE. [Concomitant]
     Active Substance: LORATADINE
     Dosage: 1 TABLET IF
     Dates: start: 20170907
  15. OXALIPLATIN. [Suspect]
     Active Substance: OXALIPLATIN
     Indication: ADJUVANT THERAPY
     Dosage: 235 MILLIGRAM (DAY 1 / VAR 3RD V 235 MG CURE 1, 8 SEPTEMBER CURE 2, 29 SEPTEMBER)
     Dates: start: 20200908, end: 20200929
  16. BRICANYL [Concomitant]
     Active Substance: TERBUTALINE SULFATE
     Dosage: 1 INHALATION WHENEVER
     Dates: start: 20190206
  17. BETNOVAT                           /00008503/ [Concomitant]
     Dosage: UNK
     Dates: start: 20171129
  18. METFORMIN [Concomitant]
     Active Substance: METFORMIN HYDROCHLORIDE
     Dosage: 2550 MILLIGRAM, QD
     Dates: start: 20170907
  19. RAMIPRIL. [Concomitant]
     Active Substance: RAMIPRIL
     Dosage: 10 MILLIGRAM, QD
     Dates: start: 20170908

REACTIONS (6)
  - Septic shock [Fatal]
  - Febrile neutropenia [Fatal]
  - Thrombocytopenia [Fatal]
  - Gastrointestinal oedema [Fatal]
  - Small intestinal haemorrhage [Fatal]
  - Gastrointestinal mucosal necrosis [Fatal]

NARRATIVE: CASE EVENT DATE: 202010
